FAERS Safety Report 21858487 (Version 3)
Quarter: 2024Q1

REPORT INFORMATION
  Report Type: Spontaneous
  Country: US (occurrence: US)
  Receive Date: 20230113
  Receipt Date: 20240304
  Transmission Date: 20240409
  Serious: No
  Sender: FDA-Public Use
  Company Number: US-SA-SAC20230111001284

PATIENT
  Age: 58 Year
  Sex: Female

DRUGS (1)
  1. DUPIXENT [Suspect]
     Active Substance: DUPILUMAB
     Indication: Asthma
     Dosage: 300 MG QOW
     Route: 058
     Dates: start: 202208

REACTIONS (8)
  - Joint stiffness [Recovered/Resolved]
  - Eczema [Recovered/Resolved]
  - Dyspnoea [Unknown]
  - Musculoskeletal stiffness [Recovered/Resolved]
  - Wheezing [Unknown]
  - Oropharyngeal pain [Unknown]
  - Oral herpes [Unknown]
  - Arthralgia [Unknown]

NARRATIVE: CASE EVENT DATE: 20221222
